FAERS Safety Report 9250546 (Version 4)
Quarter: 2013Q3

REPORT INFORMATION
  Report Type: Spontaneous
  Country: US (occurrence: US)
  Receive Date: 20130424
  Receipt Date: 20130711
  Transmission Date: 20140515
  Serious: Yes (Other)
  Sender: FDA-Public Use
  Company Number: US-BAYER-2013-048723

PATIENT
  Age: 25 Year
  Sex: Female
  Weight: 65.8 kg

DRUGS (1)
  1. MIRENA [Suspect]
     Dosage: 20 MCG/24HR, CONT
     Route: 015
     Dates: start: 201303, end: 20130328

REACTIONS (2)
  - Device dislocation [Recovered/Resolved]
  - Device breakage [None]
